FAERS Safety Report 5067035-X (Version None)
Quarter: 2006Q3

REPORT INFORMATION
  Report Type: 
  Country: None (occurrence: None)
  Receive Date: 20060727
  Receipt Date: 20060714
  Transmission Date: 20061208
  Serious: Yes (Death, Other)
  Sender: FDA-Public Use
  Company Number: 2005145558

PATIENT
  Age: 39 Year
  Sex: Female
  Weight: 79.3795 kg

DRUGS (11)
  1. NEURONTIN [Suspect]
     Indication: ANXIETY
     Dosage: 1200 MG (400 MG, 3 IN 1 D), ORAL
     Route: 048
     Dates: start: 20020201
  2. NEURONTIN [Suspect]
     Indication: BIPOLAR DISORDER
     Dosage: 1200 MG (400 MG, 3 IN 1 D), ORAL
     Route: 048
     Dates: start: 20020201
  3. XANAX [Suspect]
     Indication: DEPRESSION
  4. LITHIUM (LITHIUM) [Suspect]
     Indication: BIPOLAR DISORDER
  5. ZOLOFT [Suspect]
     Indication: ILL-DEFINED DISORDER
  6. METHADONE HCL [Suspect]
     Indication: ILL-DEFINED DISORDER
  7. SEROQUEL [Suspect]
     Indication: INSOMNIA
  8. ACETAMINOPHEN [Concomitant]
  9. PROMETHAZINE [Concomitant]
  10. HYDROCODONE (HYDROCODONE) [Concomitant]
  11. COCAINE (COCAINE) [Concomitant]

REACTIONS (11)
  - ANXIETY [None]
  - COMPLETED SUICIDE [None]
  - DROOLING [None]
  - DRUG INEFFECTIVE [None]
  - DRUG TOXICITY [None]
  - DYSARTHRIA [None]
  - HOMICIDAL IDEATION [None]
  - MOOD SWINGS [None]
  - OVERDOSE [None]
  - SOMNOLENCE [None]
  - THINKING ABNORMAL [None]
